FAERS Safety Report 9288949 (Version 1)
Quarter: 2013Q2

REPORT INFORMATION
  Report Type: Spontaneous
  Country: FR (occurrence: FR)
  Receive Date: 20130514
  Receipt Date: 20130514
  Transmission Date: 20140414
  Serious: Yes (Death)
  Sender: FDA-Public Use
  Company Number: FR-GLAXOSMITHKLINE-B0889524A

PATIENT
  Age: 86 Year
  Sex: Male

DRUGS (2)
  1. ARIXTRA [Suspect]
     Indication: JUGULAR VEIN THROMBOSIS
     Dosage: 7.5MG PER DAY
     Route: 058
     Dates: start: 201212
  2. CANCER CHEMOTHERAPY [Suspect]
     Indication: COLORECTAL CANCER
     Dosage: 40MG UNKNOWN
     Route: 048
     Dates: start: 20130202

REACTIONS (7)
  - Cerebral haematoma [Fatal]
  - Brain herniation [Unknown]
  - Coma [Unknown]
  - Hemiplegia [Unknown]
  - Mutism [Unknown]
  - Eye movement disorder [Unknown]
  - Incorrect drug administration duration [Unknown]
